FAERS Safety Report 9204983 (Version 2)
Quarter: 2013Q2

REPORT INFORMATION
  Report Type: Report from Study
  Country: US (occurrence: US)
  Receive Date: 20130402
  Receipt Date: 20130527
  Transmission Date: 20140414
  Serious: Yes (Hospitalization)
  Sender: FDA-Public Use
  Company Number: US-ROCHE-1206127

PATIENT
  Age: 58 Year
  Sex: Male
  Weight: 76 kg

DRUGS (3)
  1. VEMURAFENIB [Suspect]
     Indication: METASTATIC MALIGNANT MELANOMA
     Dosage: DATE OF LAST DOSE PRIOR TO SAE: 19/MAR/2013.
     Route: 048
     Dates: start: 20120514, end: 20130320
  2. VEMURAFENIB [Suspect]
     Route: 065
     Dates: start: 20130327
  3. GDC-0973 [Suspect]
     Indication: METASTATIC MALIGNANT MELANOMA
     Dosage: DATE OF LAST DOSE PRIOR TO SAE: 12/MAR/2013.
     Route: 048
     Dates: start: 20120514

REACTIONS (1)
  - Cellulitis [Recovered/Resolved]
